FAERS Safety Report 6190627-1 (Version None)
Quarter: 2009Q2

REPORT INFORMATION
  Report Type: 
  Country: None (occurrence: None)
  Receive Date: 20090514
  Receipt Date: 20090403
  Transmission Date: 20091009
  Serious: No
  Sender: FDA-Public Use
  Company Number: US-BRISTOL-MYERS SQUIBB COMPANY-14573174

PATIENT
  Age: 50 Year
  Sex: Female
  Weight: 67 kg

DRUGS (6)
  1. IXEMPRA KIT [Suspect]
     Indication: BREAST CANCER METASTATIC
     Dosage: WAS CHANGING TO 27MG IV WEEKLY FOR 3 WEEKS,THEN OFF 1 WEEK.
     Route: 042
     Dates: start: 20081101
  2. ZOLOFT [Concomitant]
  3. NEULASTA [Concomitant]
     Dosage: GIVEN EACH DAY AFTER IXEMPRA.
  4. ALOXI [Concomitant]
     Indication: PREMEDICATION
  5. BENADRYL [Concomitant]
     Indication: PREMEDICATION
  6. ZANTAC [Concomitant]
     Indication: PREMEDICATION

REACTIONS (1)
  - INFLUENZA LIKE ILLNESS [None]
